FAERS Safety Report 5309737-3 (Version None)
Quarter: 2007Q2

REPORT INFORMATION
  Report Type: 
  Country: None (occurrence: None)
  Receive Date: 20070427
  Receipt Date: 20070418
  Transmission Date: 20071010
  Serious: Yes (Life-Threatening, Hospitalization)
  Sender: FDA-Public Use
  Company Number: JP-ROCHE-425479

PATIENT
  Age: 67 Year
  Sex: Female

DRUGS (7)
  1. TAMIFLU [Suspect]
     Indication: INFLUENZA
     Route: 048
     Dates: start: 20051110, end: 20051114
  2. INFLUENZA VACCINE [Suspect]
     Indication: INFLUENZA IMMUNISATION
     Route: 042
     Dates: start: 20051108, end: 20051108
  3. PAXIL [Suspect]
     Indication: DEPRESSION
     Route: 048
     Dates: start: 20000615
  4. SILECE [Concomitant]
     Route: 048
     Dates: start: 20000615
  5. MYSLEE [Concomitant]
     Route: 048
     Dates: start: 20000615
  6. EVISTA [Concomitant]
     Route: 048
     Dates: start: 20000615
  7. ACETAMINOPHEN [Concomitant]
     Route: 048
     Dates: start: 20051110, end: 20051114

REACTIONS (5)
  - ABNORMAL BEHAVIOUR [None]
  - HEPATIC ENCEPHALOPATHY [None]
  - HEPATIC FAILURE [None]
  - HEPATITIS FULMINANT [None]
  - PHOTOSENSITIVITY REACTION [None]
